FAERS Safety Report 5776415-6 (Version None)
Quarter: 2008Q2

REPORT INFORMATION
  Report Type: 
  Country: None (occurrence: None)
  Receive Date: 20080618
  Receipt Date: 20080610
  Transmission Date: 20081010
  Serious: Yes (Disabling)
  Sender: FDA-Public Use
  Company Number: BR-BAYER-200814900LA

PATIENT
  Age: 50 Year
  Sex: Male

DRUGS (3)
  1. BETAFERON [Suspect]
     Indication: MULTIPLE SCLEROSIS
     Route: 058
     Dates: start: 20030101
  2. CHEMOTHERAPEUTIC DRUG [Concomitant]
     Indication: NERVOUS SYSTEM DISORDER
     Route: 048
     Dates: start: 20080201
  3. UNSPECIFIED DRUG [Concomitant]
     Indication: MULTIPLE SCLEROSIS
     Route: 054
     Dates: start: 20060101

REACTIONS (3)
  - AMNESIA [None]
  - GAIT DISTURBANCE [None]
  - MULTIPLE SCLEROSIS [None]
